FAERS Safety Report 5805249-9 (Version None)
Quarter: 2008Q3

REPORT INFORMATION
  Report Type: 
  Country: None (occurrence: None)
  Receive Date: 20080703
  Receipt Date: 20070118
  Transmission Date: 20090109
  Serious: Yes (Life-Threatening, Hospitalization)
  Sender: FDA-Public Use
  Company Number: US018272

PATIENT
  Age: 55 Year
  Sex: Female
  Weight: 64.4108 kg

DRUGS (17)
  1. FENTORA [Suspect]
     Indication: BREAKTHROUGH PAIN
     Dosage: 800 UG PRN BUCCAL
     Route: 002
     Dates: start: 20051122, end: 20060903
  2. CYCLOBENZAPRINE HCL [Suspect]
     Indication: HEADACHE
     Dosage: 10 MG PRN ORAL
     Route: 048
     Dates: start: 20051206
  3. OXYCODONE HCL EXTENDED-RELEASE [Suspect]
     Dosage: 60 MG QD ORAL
     Route: 048
     Dates: start: 20060411
  4. ATENOLOL [Concomitant]
  5. FUROSEMIDE [Concomitant]
  6. POTASSIUM CHLORIDE [Concomitant]
  7. CONJUGATED ESTROGEN [Concomitant]
  8. TEMAZEPAM [Concomitant]
  9. CLONAZEPAM [Concomitant]
  10. BUTALBITAL/CAFFIENE [Suspect]
  11. PROMETHAZINE [Concomitant]
  12. ACETAMINOPHEN AND OXYCODONE HCL [Suspect]
  13. NORTRIPTYLINE HCL [Concomitant]
  14. AGGRENOX [Suspect]
  15. VITAMIN TAB [Concomitant]
  16. RANITIDINE [Concomitant]
  17. PREGABALIN [Suspect]

REACTIONS (12)
  - ACCIDENTAL OVERDOSE [None]
  - AMNESIA [None]
  - ATRIOVENTRICULAR BLOCK FIRST DEGREE [None]
  - BARBITURATES POSITIVE [None]
  - BLOOD PRESSURE INCREASED [None]
  - DRUG SCREEN POSITIVE [None]
  - FALL [None]
  - LOSS OF CONSCIOUSNESS [None]
  - OPIATES POSITIVE [None]
  - PUPIL FIXED [None]
  - RESPIRATORY ARREST [None]
  - RESPIRATORY RATE DECREASED [None]
